FAERS Safety Report 23533753 (Version 1)
Quarter: 2024Q1

REPORT INFORMATION
  Report Type: Spontaneous
  Country: US (occurrence: US)
  Receive Date: 20240216
  Receipt Date: 20240216
  Transmission Date: 20240409
  Serious: No
  Sender: FDA-Public Use
  Company Number: US-PFIZER INC-PV202400021781

PATIENT
  Age: 28 Year
  Sex: Female
  Weight: 76.8 kg

DRUGS (4)
  1. IBRANCE [Suspect]
     Active Substance: PALBOCICLIB
     Indication: Breast cancer metastatic
     Dosage: TAKE 1 TABLET DAILY FOR 21 DAYS FOLLOW BY 7 DAYS OFF
     Route: 048
     Dates: start: 20211116, end: 202303
  2. IBRANCE [Suspect]
     Active Substance: PALBOCICLIB
     Dosage: 125 MG DAILY FOR 3 WEEKS ON-1 WEEK OFF
     Dates: start: 20230705
  3. LETROZOLE [Concomitant]
     Active Substance: LETROZOLE
     Dosage: 2.5 MG, DAILY
     Dates: start: 202111
  4. GOSERELIN [Concomitant]
     Active Substance: GOSERELIN
     Dosage: EVERY 3 MONTHS
     Dates: start: 202111

REACTIONS (1)
  - Hot flush [Unknown]
